FAERS Safety Report 4850079-8 (Version None)
Quarter: 2005Q4

REPORT INFORMATION
  Report Type: 
  Country: None (occurrence: None)
  Receive Date: 20051107
  Receipt Date: 20050420
  Transmission Date: 20060501
  Serious: Yes (Other)
  Sender: FDA-Public Use
  Company Number: PHEH2005US04602

PATIENT
  Age: 58 Year
  Sex: Female
  Weight: 63.5 kg

DRUGS (2)
  1. ESTRADIOL [Suspect]
     Indication: HORMONE REPLACEMENT THERAPY
     Dates: start: 19960101
  2. PROMETRIUM [Suspect]
     Indication: HORMONE REPLACEMENT THERAPY
     Dates: start: 19960101

REACTIONS (5)
  - ARTHRALGIA [None]
  - ENDOMETRIAL HYPERTROPHY [None]
  - PAIN IN EXTREMITY [None]
  - SMEAR CERVIX ABNORMAL [None]
  - ULTRASOUND SCAN VAGINA [None]
